FAERS Safety Report 5167563-2 (Version None)
Quarter: 2006Q4

REPORT INFORMATION
  Report Type: 
  Country: None (occurrence: None)
  Receive Date: 20060830
  Receipt Date: 20060421
  Transmission Date: 20070319
  Serious: Yes (Life-Threatening, Hospitalization)
  Sender: FDA-Public Use
  Company Number: 221198

PATIENT
  Age: 73 Year
  Sex: Female

DRUGS (18)
  1. XOLAIR [Suspect]
     Indication: ASTHMA
     Dosage: 300 MG, 1/MONTH, INTRAMUSCULAR
     Route: 030
     Dates: start: 20040414
  2. ASPIRIN [Concomitant]
  3. VYTORIN [Concomitant]
  4. LASIX [Concomitant]
  5. ATROVENT [Concomitant]
  6. ALBUTEROL NEBULIZER (ALBUTEROL/ALBURTEROL SULFATE) [Concomitant]
  7. THEO-DUR [Concomitant]
  8. ADVAIR DISKUS 100/50 [Concomitant]
  9. ACTONEL [Concomitant]
  10. CALCIUM (CALCIUM NOS) [Concomitant]
  11. ALTACE [Concomitant]
  12. PLAVIX [Concomitant]
  13. ALPHAGAN [Concomitant]
  14. SINGULAIR [Concomitant]
  15. EVISTA [Concomitant]
  16. RANITIDINE [Concomitant]
  17. TRAMADOL HCL [Concomitant]
  18. POTASSIUM (POTASSIUM NOS) [Concomitant]

REACTIONS (1)
  - LUNG NEOPLASM MALIGNANT [None]
